FAERS Safety Report 6975438-9 (Version None)
Quarter: 2010Q3

REPORT INFORMATION
  Report Type: 
  Country: None (occurrence: None)
  Receive Date: 20100910
  Receipt Date: 20100827
  Transmission Date: 20110219
  Serious: Yes (Hospitalization)
  Sender: FDA-Public Use
  Company Number: US-BAYER-201024613NA

PATIENT
  Age: 41 Year
  Sex: Female
  Weight: 80 kg

DRUGS (5)
  1. YAZ [Suspect]
     Indication: MENORRHAGIA
     Route: 048
     Dates: start: 20061222, end: 20080101
  2. DEXAMETHASONE [Concomitant]
     Dates: start: 19651130
  3. LIPITOR [Concomitant]
  4. SYNTHROID [Concomitant]
  5. FERROUS SULFATE [Concomitant]

REACTIONS (4)
  - DEEP VEIN THROMBOSIS [None]
  - FATIGUE [None]
  - PAIN IN EXTREMITY [None]
  - THROMBOSIS [None]
